FAERS Safety Report 16037519 (Version 1)
Quarter: 2019Q1

REPORT INFORMATION
  Report Type: Spontaneous
  Country: US (occurrence: US)
  Receive Date: 20190305
  Receipt Date: 20190305
  Transmission Date: 20190418
  Serious: Yes (Hospitalization)
  Sender: FDA-Public Use
  Company Number: US-MYLANLABS-2019M1018831

PATIENT
  Age: 8 Day
  Sex: Male
  Weight: 3.3 kg

DRUGS (3)
  1. DOXYCYCLINE. [Suspect]
     Active Substance: DOXYCYCLINE
     Dosage: 2ND SCLEROTHERAPY
     Route: 065
  2. DOXYCYCLINE. [Suspect]
     Active Substance: DOXYCYCLINE
     Indication: LYMPHANGIOMA
     Dosage: 1ST SCLEROTHERAPY; ~150 MG/KG MIXED WITH IOHEXOL
     Route: 065
  3. IOHEXOL [Concomitant]
     Active Substance: IOHEXOL
     Indication: PRODUCT USED FOR UNKNOWN INDICATION
     Dosage: A WATER-SOLUBLE CONTRAST AGENT; CONTAINS 1.21 MG/ML TROMETHAMINE AND 0.1 MG/ ML EDETATE CALCIUM D...
     Route: 065

REACTIONS (4)
  - Hypoglycaemia [Unknown]
  - Haemolytic anaemia [Unknown]
  - Metabolic acidosis [Unknown]
  - Methaemoglobinaemia [Recovered/Resolved]
